FAERS Safety Report 6812379-1 (Version None)
Quarter: 2010Q3

REPORT INFORMATION
  Report Type: 
  Country: None (occurrence: None)
  Receive Date: 20100701
  Receipt Date: 20100624
  Transmission Date: 20110219
  Serious: Yes (Hospitalization)
  Sender: FDA-Public Use
  Company Number: PL-AMGEN-KDC413133

PATIENT
  Sex: Female

DRUGS (6)
  1. DENOSUMAB - STUDY PROCEDURE [Suspect]
  2. DENOSUMAB [Suspect]
     Indication: OSTEOPOROSIS POSTMENOPAUSAL
     Route: 058
     Dates: start: 20100206
  3. CALCIUM WITH VITAMIN D [Suspect]
  4. SPIRONOLACTONE [Concomitant]
     Route: 048
     Dates: start: 20100113
  5. BISOCARD [Concomitant]
     Route: 048
     Dates: start: 20100113
  6. AMLODIPINE [Concomitant]
     Route: 048
     Dates: start: 20100113

REACTIONS (3)
  - BILE DUCT STONE [None]
  - CHOLANGITIS [None]
  - JAUNDICE CHOLESTATIC [None]
